FAERS Safety Report 10584095 (Version 1)
Quarter: 2014Q4

REPORT INFORMATION
  Report Type: Spontaneous
  Country: TR (occurrence: None)
  Receive Date: 20141112
  Receipt Date: 20141112
  Transmission Date: 20150529
  Serious: Yes (Life-Threatening, Hospitalization)
  Sender: FDA-Public Use
  Company Number: IPC201410-000592

PATIENT
  Age: 52 Year
  Sex: Male

DRUGS (3)
  1. HYDROCHLOROTHIAZIDE (HYDROCHLOROTHIAZIDE) (HYDROCHLOROTHIAZIDE) [Suspect]
     Active Substance: HYDROCHLOROTHIAZIDE
     Indication: HYPERTENSION
     Dosage: ONCE DAILY
  2. TRANDOLAPRIL. [Suspect]
     Active Substance: TRANDOLAPRIL
     Indication: HYPERTENSION
     Dosage: ONCE DAILY
  3. LITHIUM [Suspect]
     Active Substance: LITHIUM CARBONATE
     Indication: BIPOLAR DISORDER
     Dosage: DAY

REACTIONS (9)
  - Speech disorder [None]
  - Gait disturbance [None]
  - Toxicity to various agents [None]
  - Balance disorder [None]
  - Nausea [None]
  - Sinus arrhythmia [None]
  - Drug interaction [None]
  - Vomiting [None]
  - Tremor [None]
